FAERS Safety Report 22394208 (Version 3)
Quarter: 2023Q2

REPORT INFORMATION
  Report Type: Report from Study
  Country: CN (occurrence: CN)
  Receive Date: 20230601
  Receipt Date: 20230613
  Transmission Date: 20230721
  Serious: Yes (Hospitalization)
  Sender: FDA-Public Use
  Company Number: CN-JNJFOC-20230555604

PATIENT
  Age: 69 Year
  Sex: Male
  Weight: 65 kg

DRUGS (5)
  1. AMIVANTAMAB [Suspect]
     Active Substance: AMIVANTAMAB
     Indication: Non-small cell lung cancer
     Dosage: 7ML VIAL
     Route: 042
     Dates: start: 20230411, end: 20230509
  2. BISOPROLOL FUMARATE [Concomitant]
     Active Substance: BISOPROLOL FUMARATE
     Indication: Hypertension
     Route: 048
     Dates: start: 20230101
  3. INSULIN DEGLUDEC AND INSULIN ASPART [Concomitant]
     Indication: Diabetes mellitus
     Route: 058
     Dates: start: 20230101
  4. RIVAROXABAN [Concomitant]
     Active Substance: RIVAROXABAN
     Indication: Venous thrombosis limb
     Route: 048
     Dates: start: 20230311
  5. DESONIDE [Concomitant]
     Active Substance: DESONIDE
     Indication: Prophylaxis
     Route: 061
     Dates: start: 20230412

REACTIONS (1)
  - Hypocalcaemia [Recovering/Resolving]

NARRATIVE: CASE EVENT DATE: 20230522
